FAERS Safety Report 12710022 (Version 1)
Quarter: 2016Q3

REPORT INFORMATION
  Report Type: Spontaneous
  Country: US (occurrence: US)
  Receive Date: 20160902
  Receipt Date: 20160902
  Transmission Date: 20161109
  Serious: Yes (Other)
  Sender: FDA-Public Use
  Company Number: US-ASTRAZENECA-2016SE91895

PATIENT
  Age: 29217 Day
  Sex: Male
  Weight: 52.2 kg

DRUGS (4)
  1. SEROQUEL [Suspect]
     Active Substance: QUETIAPINE FUMARATE
     Indication: INSOMNIA
     Dosage: AT NIGHT BEFORE BED AROUND 8 PM
     Route: 048
     Dates: start: 20160819, end: 20160823
  2. ZOLOFT [Concomitant]
     Active Substance: SERTRALINE HYDROCHLORIDE
     Route: 048
     Dates: start: 20160727
  3. SEROQUEL [Suspect]
     Active Substance: QUETIAPINE FUMARATE
     Indication: INSOMNIA
     Dosage: INCREASED DOSE
     Route: 048
     Dates: start: 20160823
  4. ATIVAN [Concomitant]
     Active Substance: LORAZEPAM
     Route: 048
     Dates: start: 20160727

REACTIONS (7)
  - Dementia [Unknown]
  - Lip swelling [Unknown]
  - Facial paralysis [Unknown]
  - Product use issue [Unknown]
  - Squamous cell carcinoma of head and neck [Unknown]
  - Swelling face [Unknown]
  - Off label use [Unknown]

NARRATIVE: CASE EVENT DATE: 20160819
